FAERS Safety Report 16789768 (Version 1)
Quarter: 2019Q3

REPORT INFORMATION
  Report Type: Spontaneous
  Country: US (occurrence: US)
  Receive Date: 20190910
  Receipt Date: 20190910
  Transmission Date: 20191005
  Serious: Yes (Hospitalization)
  Sender: FDA-Public Use
  Company Number: US-TEVA-2019-US-1105404

PATIENT
  Age: 58 Year
  Sex: Male

DRUGS (5)
  1. LEUCOVORIN. [Concomitant]
     Active Substance: LEUCOVORIN
     Indication: ADENOCARCINOMA OF COLON
     Route: 042
  2. ONDANSETRON [Concomitant]
     Active Substance: ONDANSETRON
     Route: 042
  3. DEXAMETHASONE. [Concomitant]
     Active Substance: DEXAMETHASONE
     Route: 042
  4. 5-FLUOROURACIL [Suspect]
     Active Substance: FLUOROURACIL
     Indication: ADENOCARCINOMA OF COLON
     Route: 042
  5. 5-FLUOROURACIL [Suspect]
     Active Substance: FLUOROURACIL
     Dosage: INFUSION PUMP SETUP WAS PLACED TO DELIVER 5495MG OF FLUOROURACIL TO BE DELIVERED IN OVER 46 HOURS
     Route: 041

REACTIONS (9)
  - Clostridium difficile infection [Recovering/Resolving]
  - Feeling abnormal [Recovering/Resolving]
  - Nystagmus [Recovering/Resolving]
  - Thrombocytopenia [Recovering/Resolving]
  - Overdose [Unknown]
  - Incorrect product administration duration [Unknown]
  - Leukopenia [Recovering/Resolving]
  - Hypoaesthesia [Recovered/Resolved]
  - Device issue [Unknown]
